FAERS Safety Report 9422076 (Version 1)
Quarter: 2013Q3

REPORT INFORMATION
  Report Type: Spontaneous
  Country: US (occurrence: None)
  Receive Date: 20130725
  Receipt Date: 20130725
  Transmission Date: 20140515
  Serious: No
  Sender: FDA-Public Use
  Company Number: None

PATIENT
  Age: 60 None
  Sex: Male

DRUGS (9)
  1. CIPROFLOXACN [Suspect]
     Indication: CHEMICAL INJURY
     Route: 048
     Dates: start: 20130716, end: 20130721
  2. METOPROPLOL [Concomitant]
  3. PROCARDIA XL [Concomitant]
  4. LIPITOR [Concomitant]
  5. AMBIEN CR [Concomitant]
  6. ASPIRIN [Concomitant]
  7. MULTI VITAMIN [Concomitant]
  8. COQ10 [Concomitant]
  9. PROBIOTIC [Concomitant]

REACTIONS (2)
  - Tendonitis [None]
  - Pain [None]
